FAERS Safety Report 5843720-4 (Version None)
Quarter: 2008Q3

REPORT INFORMATION
  Report Type: 
  Country: None (occurrence: None)
  Receive Date: 20080813
  Receipt Date: 20080521
  Transmission Date: 20090109
  Serious: Yes (Other)
  Sender: FDA-Public Use
  Company Number: US-BRISTOL-MYERS SQUIBB COMPANY-14166052

PATIENT
  Age: 33 Year
  Sex: Female

DRUGS (2)
  1. IXEMPRA KIT [Suspect]
     Indication: BREAST CANCER METASTATIC
     Dosage: 5 DOSES GIVEN
     Route: 042
     Dates: start: 20080107
  2. HERCEPTIN [Concomitant]

REACTIONS (4)
  - ASTHENIA [None]
  - DYSSTASIA [None]
  - FATIGUE [None]
  - NEUROPATHY PERIPHERAL [None]
